FAERS Safety Report 11132588 (Version 4)
Quarter: 2015Q2

REPORT INFORMATION
  Report Type: Spontaneous
  Country: HR (occurrence: HR)
  Receive Date: 20150522
  Receipt Date: 20150610
  Transmission Date: 20150821
  Serious: Yes (Death, Other)
  Sender: FDA-Public Use
  Company Number: HR-PFIZER INC-2015148601

PATIENT
  Age: 55 Year
  Sex: Male

DRUGS (2)
  1. SUTENT [Suspect]
     Active Substance: SUNITINIB MALATE
     Indication: RENAL CANCER METASTATIC
     Dosage: 50 MG, PER DAY (4/2 SCHEME)
     Route: 048
     Dates: start: 20130412
  2. MEGOSTAT [Concomitant]
     Dosage: 10 ML, 1X/DAY, IN THE MORNING BEFORE MEAL

REACTIONS (3)
  - Pulmonary embolism [Fatal]
  - Thyroiditis chronic [Unknown]
  - Weight decreased [Unknown]

NARRATIVE: CASE EVENT DATE: 201310
